FAERS Safety Report 15340381 (Version 1)
Quarter: 2018Q4

REPORT INFORMATION
  Report Type: Spontaneous
  Country: ES (occurrence: ES)
  Receive Date: 20180831
  Receipt Date: 20180831
  Transmission Date: 20190204
  Serious: Yes (Hospitalization)
  Sender: FDA-Public Use
  Company Number: ES-ABBVIE-18K-144-2471576-00

PATIENT
  Age: 58 Year
  Sex: Female

DRUGS (5)
  1. TOCILIZUMAB (8289A) [Interacting]
     Active Substance: TOCILIZUMAB
     Indication: RHEUMATOID ARTHRITIS
     Route: 065
     Dates: start: 20170601
  2. HUMIRA [Suspect]
     Active Substance: ADALIMUMAB
     Indication: RHEUMATOID ARTHRITIS
     Route: 058
     Dates: start: 20161004, end: 20170303
  3. COSENTYX [Interacting]
     Active Substance: SECUKINUMAB
     Indication: RHEUMATOID ARTHRITIS
     Dosage: INJECTABLE SOLUTION IN PREPARED SYRINGE
     Route: 065
     Dates: start: 20170303, end: 20170601
  4. SALAZOPYRINA [Interacting]
     Active Substance: SULFASALAZINE
     Indication: RHEUMATOID ARTHRITIS
     Dosage: COMPRESSES
     Route: 065
     Dates: start: 201707, end: 201802
  5. ARAVA [Interacting]
     Active Substance: LEFLUNOMIDE
     Indication: RHEUMATOID ARTHRITIS
     Route: 048
     Dates: start: 2016, end: 20170303

REACTIONS (3)
  - Drug interaction [Unknown]
  - Chronic myelomonocytic leukaemia [Not Recovered/Not Resolved]
  - Mastocytosis [Not Recovered/Not Resolved]

NARRATIVE: CASE EVENT DATE: 201804
